FAERS Safety Report 9410742 (Version 1)
Quarter: 2013Q3

REPORT INFORMATION
  Report Type: Report from Study
  Country: CO (occurrence: CO)
  Receive Date: 20130719
  Receipt Date: 20130719
  Transmission Date: 20140515
  Serious: Yes (Death, Other)
  Sender: FDA-Public Use
  Company Number: CO-ABBOTT-13P-036-1122692-00

PATIENT
  Sex: Female
  Weight: 25 kg

DRUGS (1)
  1. HUMIRA [Suspect]
     Indication: CROHN^S DISEASE
     Dates: start: 20120717, end: 20130604

REACTIONS (6)
  - Pyrexia [Fatal]
  - Dysphagia [Fatal]
  - Depression [Fatal]
  - Decreased appetite [Fatal]
  - Grief reaction [Fatal]
  - Decreased appetite [Unknown]
